APPROVED DRUG PRODUCT: HALFLYTELY
Active Ingredient: BISACODYL; POLYETHYLENE GLYCOL 3350; POTASSIUM CHLORIDE; SODIUM BICARBONATE; SODIUM CHLORIDE
Strength: 5MG,N/A;N/A,210GM;N/A,0.74GM;N/A,2.86GM;N/A,5.6GM **Federal Register determination that product was not discontinued or withdrawn for safety or effectiveness reasons**
Dosage Form/Route: FOR SOLUTION, TABLET, DELAYED RELEASE;ORAL
Application: N021551 | Product #003
Applicant: BRAINTREE LABORATORIES INC
Approved: Jul 16, 2010 | RLD: Yes | RS: No | Type: DISCN